FAERS Safety Report 10904236 (Version 1)
Quarter: 2015Q1

REPORT INFORMATION
  Report Type: Spontaneous
  Country: US (occurrence: US)
  Receive Date: 20150311
  Receipt Date: 20150311
  Transmission Date: 20150721
  Serious: Yes (Other)
  Sender: FDA-Public Use
  Company Number: US-ELI_LILLY_AND_COMPANY-US201503000989

PATIENT
  Sex: Male

DRUGS (2)
  1. CYMBALTA [Suspect]
     Active Substance: DULOXETINE HYDROCHLORIDE
     Indication: DEPRESSION
     Dosage: UNK
     Dates: start: 2007, end: 201407
  2. CYMBALTA [Suspect]
     Active Substance: DULOXETINE HYDROCHLORIDE
     Indication: ANXIETY

REACTIONS (11)
  - Drug withdrawal syndrome [Unknown]
  - Anxiety [Unknown]
  - Feeling abnormal [Unknown]
  - Suicidal ideation [Unknown]
  - Panic disorder [Unknown]
  - Agoraphobia [Unknown]
  - Tinnitus [Unknown]
  - Abdominal pain upper [Unknown]
  - Influenza like illness [Unknown]
  - Dysphoria [Unknown]
  - Photopsia [Unknown]
